FAERS Safety Report 10694679 (Version 3)
Quarter: 2015Q3

REPORT INFORMATION
  Report Type: Spontaneous
  Country: US (occurrence: US)
  Receive Date: 20150107
  Receipt Date: 20150810
  Transmission Date: 20151125
  Serious: Yes (Hospitalization)
  Sender: FDA-Public Use
  Company Number: US-BAYER-2015-001445

PATIENT
  Age: 33 Year
  Sex: Female
  Weight: 61.22 kg

DRUGS (1)
  1. MIRENA [Suspect]
     Active Substance: LEVONORGESTREL
     Indication: MENORRHAGIA
     Dosage: 20 MCG/24HR, CONT
     Route: 015
     Dates: start: 20071120, end: 20130201

REACTIONS (12)
  - Menorrhagia [None]
  - Drug ineffective [None]
  - Malaise [None]
  - Device use error [None]
  - Injury [Recovered/Resolved]
  - Malaise [Recovered/Resolved]
  - Embedded device [Recovered/Resolved]
  - Device issue [None]
  - Pain [Recovered/Resolved]
  - Depression [None]
  - Emotional distress [None]
  - Anxiety [None]

NARRATIVE: CASE EVENT DATE: 200711
